FAERS Safety Report 6250018-1 (Version None)
Quarter: 2009Q2

REPORT INFORMATION
  Report Type: 
  Country: None (occurrence: None)
  Receive Date: 20090629
  Receipt Date: 20090617
  Transmission Date: 20091009
  Serious: Yes (Other)
  Sender: FDA-Public Use
  Company Number: PHHY2009ZA24125

PATIENT
  Age: 74 Year
  Sex: Female

DRUGS (5)
  1. TEGRETOL [Suspect]
     Indication: NEURALGIA
     Dosage: 50 MG, BID
  2. TEGRETOL [Suspect]
     Dosage: 100 MG, BID
     Dates: start: 20090615
  3. NOOTROPYL [Concomitant]
  4. LESCOL [Concomitant]
  5. ASPIRIN [Concomitant]

REACTIONS (4)
  - DELIRIUM [None]
  - DYSARTHRIA [None]
  - HYPOTONIA [None]
  - RESTLESSNESS [None]
